FAERS Safety Report 8828673 (Version 1)
Quarter: 2012Q4

REPORT INFORMATION
  Report Type: Report from Study
  Country: ES (occurrence: ES)
  Receive Date: 20121005
  Receipt Date: 20121005
  Transmission Date: 20130627
  Serious: Yes (Hospitalization, Other)
  Sender: FDA-Public Use
  Company Number: ES-ASTELLAS-2012US009752

PATIENT
  Age: 69 Year
  Sex: Male
  Weight: 68 kg

DRUGS (6)
  1. ERLOTINIB TABLET [Suspect]
     Indication: NON-SMALL CELL LUNG CANCER
     Dosage: 150 mg, UID/QD
     Route: 048
     Dates: start: 20120921, end: 20120927
  2. OMEPRAZOLE [Concomitant]
     Indication: PROPHYLAXIS
     Dosage: 20 mg, Q12 hours
     Route: 048
     Dates: start: 20091006
  3. METOCLOPRAMIDE [Concomitant]
     Indication: NAUSEA
     Dosage: 10 mg, Q8 hours
     Route: 048
     Dates: start: 20120502
  4. FENOFIBRATE [Concomitant]
     Indication: HYPERTRIGLYCERIDAEMIA
     Dosage: 160 mg, UID/QD
     Route: 048
     Dates: start: 20110303
  5. IBUPROFEN [Concomitant]
     Indication: PAIN
     Dosage: 600 mg, Q8 hours
     Route: 048
     Dates: start: 20120725
  6. IRON [Concomitant]
     Indication: ANAEMIA
     Dosage: 800 mg, Q12 hours
     Route: 048
     Dates: start: 20120720

REACTIONS (2)
  - Cholelithiasis [Unknown]
  - Pancreatitis acute [Not Recovered/Not Resolved]
